FAERS Safety Report 5695118-X (Version None)
Quarter: 2008Q2

REPORT INFORMATION
  Report Type: 
  Country: None (occurrence: None)
  Receive Date: 20080404
  Receipt Date: 20080325
  Transmission Date: 20081010
  Serious: Yes (Other)
  Sender: FDA-Public Use
  Company Number: FR-PFIZER INC-2008016281

PATIENT
  Sex: Male

DRUGS (3)
  1. LYRICA [Suspect]
     Indication: NECK PAIN
  2. LAROXYL [Concomitant]
  3. DEPAMIDE [Concomitant]

REACTIONS (1)
  - VITREOUS FLOATERS [None]
